FAERS Safety Report 10299255 (Version 2)
Quarter: 2014Q3

REPORT INFORMATION
  Report Type: Not Available
  Country: FR (occurrence: FR)
  Receive Date: 20140711
  Receipt Date: 20140902
  Transmission Date: 20150326
  Serious: Yes (Hospitalization)
  Sender: FDA-Public Use
  Company Number: FR-MUNDIPHARMA DS AND PHARMACOVIGILANCE-GBR-2014-0019119

PATIENT
  Age: 42 Year
  Sex: Female

DRUGS (22)
  1. MORPHINE [Concomitant]
     Active Substance: MORPHINE
     Dosage: UNK
     Route: 042
     Dates: start: 20140601
  2. SEROPLEX [Concomitant]
     Active Substance: ESCITALOPRAM OXALATE
     Dosage: 10 MG, DAILY
  3. BACTRIM [Concomitant]
     Active Substance: SULFAMETHOXAZOLE\TRIMETHOPRIM
     Dosage: 80 MG, DAILY
  4. POSACONAZOLE [Suspect]
     Active Substance: POSACONAZOLE
     Dosage: UNK
     Dates: start: 20140603
  5. XANAX [Concomitant]
     Active Substance: ALPRAZOLAM
     Dosage: 0.5 MG, DAILY
  6. KEPPRA [Concomitant]
     Active Substance: LEVETIRACETAM
     Dosage: 500 MG, BID
  7. URSOLVAN [Concomitant]
     Active Substance: URSODIOL
  8. SOLUPRED                           /00016217/ [Concomitant]
  9. LEDERFOLINE [Concomitant]
     Active Substance: LEUCOVORIN CALCIUM
  10. PARACETAMOL [Concomitant]
     Active Substance: ACETAMINOPHEN
  11. INEXIUM                            /01479302/ [Concomitant]
     Active Substance: ESOMEPRAZOLE MAGNESIUM
     Dosage: 40 MG, DAILY
  12. LYRICA [Concomitant]
     Active Substance: PREGABALIN
     Dosage: 100 MG, BID
  13. LOVENOX [Concomitant]
     Active Substance: ENOXAPARIN SODIUM
     Dosage: 0.4 ML, UNK
  14. MAG 2                              /00799801/ [Concomitant]
  15. OXYNORM [Suspect]
     Active Substance: OXYCODONE HYDROCHLORIDE
     Indication: PAIN
     Dosage: UNK
     Route: 065
     Dates: start: 20140528, end: 20140601
  16. TACROLIMUS. [Concomitant]
     Active Substance: TACROLIMUS
     Dosage: 1 MG, BID
  17. POSACONAZOLE [Suspect]
     Active Substance: POSACONAZOLE
     Indication: PRODUCT USED FOR UNKNOWN INDICATION
     Dosage: 200 MG, BID
     Route: 065
     Dates: start: 20140528, end: 20140602
  18. CYSTEINE [Concomitant]
     Active Substance: CYSTEINE
  19. OXYCONTIN [Suspect]
     Active Substance: OXYCODONE HYDROCHLORIDE
     Indication: PAIN
     Dosage: UNK
     Route: 048
     Dates: start: 20140528, end: 20140601
  20. AMLOR [Concomitant]
     Active Substance: AMLODIPINE BESYLATE
     Dosage: 10 MG, DAILY
  21. ATARAX [Concomitant]
     Active Substance: HYDROXYZINE\HYDROXYZINE HYDROCHLORIDE
     Dosage: 50 MG, UNK
  22. RUBOZINC [Concomitant]

REACTIONS (3)
  - Aggression [Recovering/Resolving]
  - Encephalopathy [Recovering/Resolving]
  - Somnolence [Recovering/Resolving]

NARRATIVE: CASE EVENT DATE: 20140530
